FAERS Safety Report 9162185 (Version 2)
Quarter: 2013Q2

REPORT INFORMATION
  Report Type: Spontaneous
  Country: US (occurrence: US)
  Receive Date: 20130314
  Receipt Date: 20130409
  Transmission Date: 20140414
  Serious: Yes (Other)
  Sender: FDA-Public Use
  Company Number: US-BAYER-2013-027653

PATIENT
  Age: 66 Year
  Sex: Female
  Weight: 59 kg

DRUGS (11)
  1. CIPRO [Suspect]
     Indication: DIVERTICULUM
     Dosage: UNK
  2. FLECAINIDE [Interacting]
     Indication: VENTRICULAR ARRHYTHMIA
     Dosage: 100 MG, BID
     Dates: start: 2000
  3. SYNTHROID [Concomitant]
     Indication: HYPOTHYROIDISM
     Dosage: 100 MCG/24HR, UNK
     Dates: start: 1990
  4. DIOVAN HCT [Concomitant]
     Indication: HYPERTENSION
     Dosage: 160 MG/25 MG
     Dates: start: 2007
  5. GABAPENTIN [Concomitant]
     Indication: COMPLEX REGIONAL PAIN SYNDROME
     Dosage: 300 MG, TID
     Dates: start: 2011
  6. PREMPRO [Concomitant]
     Indication: MENOPAUSE
     Dosage: 0.625/2.5 MG
     Dates: start: 2005
  7. ACETYLSALICYLIC ACID({=100 MG) [Concomitant]
     Dosage: 81 MG, QD
  8. FIORICET [Concomitant]
     Dosage: HALF TABLET AS NEEDED
  9. MAGNESIUM OXIDE [Concomitant]
     Dosage: 400 MG, BID
  10. CALCIUM +VIT D [Concomitant]
     Dosage: DAILY
  11. TOPAMAX [Concomitant]
     Dosage: 25 MG, UNK

REACTIONS (3)
  - Ventricular arrhythmia [Recovering/Resolving]
  - Dyspnoea [Recovering/Resolving]
  - Drug interaction [None]
